FAERS Safety Report 6180645-1 (Version None)
Quarter: 2009Q2

REPORT INFORMATION
  Report Type: 
  Country: None (occurrence: None)
  Receive Date: 20090504
  Receipt Date: 20090420
  Transmission Date: 20091009
  Serious: Yes (Death, Hospitalization, Other)
  Sender: FDA-Public Use
  Company Number: 2009-01273

PATIENT
  Age: 76 Year
  Sex: Male
  Weight: 75.6 kg

DRUGS (2)
  1. VELCADE [Suspect]
     Indication: MULTIPLE MYELOMA
     Dosage: 1.3 MG/M2, INTRAVENOUS
     Route: 042
     Dates: start: 20090127, end: 20090206
  2. DOXIL [Suspect]
     Indication: MULTIPLE MYELOMA
     Dates: start: 20090101

REACTIONS (5)
  - ACUTE RESPIRATORY FAILURE [None]
  - DIZZINESS [None]
  - FALL [None]
  - HAEMORRHAGE INTRACRANIAL [None]
  - HEAD INJURY [None]
